FAERS Safety Report 21959211 (Version 2)
Quarter: 2023Q1

REPORT INFORMATION
  Report Type: Spontaneous
  Country: US (occurrence: US)
  Receive Date: 20230206
  Receipt Date: 20230207
  Transmission Date: 20230417
  Serious: No
  Sender: FDA-Public Use
  Company Number: US-BRISTOL-MYERS SQUIBB COMPANY-2023-003745

PATIENT

DRUGS (2)
  1. ABATACEPT [Suspect]
     Active Substance: ABATACEPT
     Indication: Product used for unknown indication
     Dosage: DOSE : 750MG;     FREQ : UNAVAILABLE
     Route: 042
  2. ABATACEPT [Suspect]
     Active Substance: ABATACEPT
     Route: 042

REACTIONS (1)
  - Wrong technique in device usage process [Unknown]

NARRATIVE: CASE EVENT DATE: 20221102
